FAERS Safety Report 17395218 (Version 1)
Quarter: 2020Q1

REPORT INFORMATION
  Report Type: Spontaneous
  Country: FR (occurrence: FR)
  Receive Date: 20200210
  Receipt Date: 20200210
  Transmission Date: 20200409
  Serious: Yes (Disabling)
  Sender: FDA-Public Use
  Company Number: FR-ROCHE-2541218

PATIENT
  Age: 68 Year
  Sex: Female
  Weight: 72 kg

DRUGS (3)
  1. RITUXIMAB. [Suspect]
     Active Substance: RITUXIMAB
     Indication: LEUKAEMIA
     Route: 041
     Dates: start: 20190617, end: 20190909
  2. FLUDARABINE PHOSPHATE. [Suspect]
     Active Substance: FLUDARABINE PHOSPHATE
     Indication: LEUKAEMIA
     Dosage: 5 DAYS A MONTHS
     Route: 048
     Dates: start: 20190617, end: 20190913
  3. CYCLOPHOSPHAMIDE. [Suspect]
     Active Substance: CYCLOPHOSPHAMIDE
     Indication: LEUKAEMIA
     Dosage: 5 DAYS A MONTH
     Route: 048
     Dates: start: 20190617, end: 20190913

REACTIONS (1)
  - Deafness bilateral [Recovering/Resolving]

NARRATIVE: CASE EVENT DATE: 20191101
